FAERS Safety Report 9464628 (Version 1)
Quarter: 2013Q3

REPORT INFORMATION
  Report Type: Spontaneous
  Country: SG (occurrence: SG)
  Receive Date: 20130819
  Receipt Date: 20130819
  Transmission Date: 20140515
  Serious: Yes (Other)
  Sender: FDA-Public Use
  Company Number: SG-PFIZER INC-2013233684

PATIENT
  Age: 32 Year
  Sex: Female

DRUGS (3)
  1. METRONIDAZOLE [Suspect]
  2. BRUFEN [Suspect]
  3. AMOXICILLIN [Suspect]

REACTIONS (1)
  - Periorbital oedema [Unknown]
